FAERS Safety Report 5396853-3 (Version None)
Quarter: 2007Q3

REPORT INFORMATION
  Report Type: 
  Country: None (occurrence: None)
  Receive Date: 20070725
  Receipt Date: 20070723
  Transmission Date: 20080115
  Serious: Yes (Hospitalization, Other)
  Sender: FDA-Public Use
  Company Number: NZ-BRISTOL-MYERS SQUIBB COMPANY-13854260

PATIENT
  Age: 44 Year
  Sex: Male

DRUGS (7)
  1. ACETAMINOPHEN [Suspect]
  2. METOPROLOL TARTRATE [Suspect]
  3. METHADONE HCL [Suspect]
  4. MEROPENEM [Suspect]
  5. AMITRIPTYLINE HCL [Suspect]
  6. ONDANSETRON [Suspect]
  7. OMEPRAZOLE [Suspect]

REACTIONS (7)
  - HAEMOGLOBIN DECREASED [None]
  - HYPERKALAEMIA [None]
  - LEUKOCYTOSIS [None]
  - LIVER FUNCTION TEST ABNORMAL [None]
  - NEUTROPHIL COUNT [None]
  - RESPIRATORY ACIDOSIS [None]
  - RESPIRATORY FAILURE [None]
